FAERS Safety Report 17930153 (Version 1)
Quarter: 2020Q2

REPORT INFORMATION
  Report Type: Report from Study
  Country: ES (occurrence: ES)
  Receive Date: 20200623
  Receipt Date: 20200623
  Transmission Date: 20200714
  Serious: Yes (Other)
  Sender: FDA-Public Use
  Company Number: ES-ASTELLAS-2020US020851

PATIENT
  Age: 68 Year
  Sex: Male

DRUGS (6)
  1. AZITHROMYCIN ANHYDROUS. [Suspect]
     Active Substance: AZITHROMYCIN ANHYDROUS
     Indication: COVID-19
     Route: 048
     Dates: start: 20200414, end: 20200415
  2. SULFAMETHOXAZOLE+TRIMETHOPRIM [Suspect]
     Active Substance: SULFAMETHOXAZOLE\TRIMETHOPRIM
     Indication: COVID-19
     Dosage: UNK UNK, UNKNOWN FREQ.
     Route: 048
     Dates: start: 20200414, end: 20200416
  3. KALETRA [Suspect]
     Active Substance: LOPINAVIR\RITONAVIR
     Indication: COVID-19
     Dosage: 2 DF, ONCE DAILY (200/50 MG, FILM COTED TABLETS)
     Route: 048
     Dates: start: 20200415, end: 20200415
  4. MICAFUNGIN. [Suspect]
     Active Substance: MICAFUNGIN SODIUM
     Indication: COVID-19
     Dosage: UNK UNK, UNKNOWN FREQ.
     Route: 042
     Dates: start: 20200414, end: 20200420
  5. HYDROXYCHLOROQUINE SULFATE. [Suspect]
     Active Substance: HYDROXYCHLOROQUINE SULFATE
     Indication: COVID-19
     Route: 048
     Dates: start: 20200414, end: 20200420
  6. PIPERACILINA + TAZOBACTAM [Suspect]
     Active Substance: PIPERACILLIN SODIUM\TAZOBACTAM SODIUM
     Indication: COVID-19
     Dosage: UNK UNK, UNKNOWN FREQ.
     Route: 042
     Dates: start: 20200414, end: 20200420

REACTIONS (2)
  - Mixed liver injury [Recovered/Resolved]
  - Product use in unapproved indication [Unknown]

NARRATIVE: CASE EVENT DATE: 20200414
